FAERS Safety Report 7090167-1 (Version None)
Quarter: 2010Q4

REPORT INFORMATION
  Report Type: 
  Country: None (occurrence: None)
  Receive Date: 20101105
  Receipt Date: 20101105
  Transmission Date: 20110411
  Serious: Yes (Other)
  Sender: FDA-Public Use
  Company Number: None

PATIENT
  Age: 35 Year
  Sex: Female

DRUGS (8)
  1. INVEGA SUSTENNA [Suspect]
     Indication: BIPOLAR DISORDER
     Dosage: 234 MG IM
     Route: 030
     Dates: start: 20100910
  2. LORATADINE [Concomitant]
  3. PRILOSEC [Concomitant]
  4. REQUIP [Concomitant]
  5. ALPRAZOLAM [Concomitant]
  6. DOCUSATE [Concomitant]
  7. ENJUVIA [Concomitant]
  8. GABAPENTIN [Concomitant]

REACTIONS (1)
  - DYSTONIA [None]
